FAERS Safety Report 6711493-9 (Version None)
Quarter: 2010Q2

REPORT INFORMATION
  Report Type: 
  Country: None (occurrence: None)
  Receive Date: 20100504
  Receipt Date: 20100504
  Transmission Date: 20101027
  Serious: Yes (Other)
  Sender: FDA-Public Use
  Company Number: None

PATIENT
  Age: 20 Year
  Sex: Male
  Weight: 77.1115 kg

DRUGS (1)
  1. CIMETIDINE [Suspect]
     Indication: SKIN PAPILLOMA
     Dosage: 800MG 3 TIMES A DAY PO
     Route: 048
     Dates: start: 20100412, end: 20100421

REACTIONS (4)
  - CONFUSIONAL STATE [None]
  - EDUCATIONAL PROBLEM [None]
  - FATIGUE [None]
  - SOMNOLENCE [None]
